FAERS Safety Report 11058769 (Version 1)
Quarter: 2015Q2

REPORT INFORMATION
  Report Type: Spontaneous
  Country: US (occurrence: None)
  Receive Date: 20150422
  Receipt Date: 20150422
  Transmission Date: 20150821
  Serious: Yes (Hospitalization)
  Sender: FDA-Public Use
  Company Number: None

PATIENT
  Age: 78 Year
  Sex: Male
  Weight: 79.5 kg

DRUGS (2)
  1. WARFARIN [Suspect]
     Active Substance: WARFARIN
     Route: 048
     Dates: start: 20150108
  2. ENOXAPARIN [Suspect]
     Active Substance: ENOXAPARIN
     Dosage: 80 UNITS  BID  SQ
     Route: 058
     Dates: start: 20150410, end: 20150411

REACTIONS (3)
  - Haematoma [None]
  - Procedural site reaction [None]
  - Haemorrhage [None]

NARRATIVE: CASE EVENT DATE: 20150417
